FAERS Safety Report 8836740 (Version 7)
Quarter: 2014Q4

REPORT INFORMATION
  Report Type: Spontaneous
  Country: BE (occurrence: BE)
  Receive Date: 20121012
  Receipt Date: 20141020
  Transmission Date: 20150529
  Serious: Yes (Other)
  Sender: FDA-Public Use
  Company Number: BE-BIOGENIDEC-2012BI042082

PATIENT
  Age: 42 Year
  Sex: Female
  Weight: 52 kg

DRUGS (1)
  1. TYSABRI [Suspect]
     Active Substance: NATALIZUMAB
     Indication: PRODUCT USED FOR UNKNOWN INDICATION
     Route: 042
     Dates: start: 20081001, end: 20121001

REACTIONS (2)
  - Progressive multifocal leukoencephalopathy [Not Recovered/Not Resolved]
  - Immune reconstitution inflammatory syndrome [Not Recovered/Not Resolved]

NARRATIVE: CASE EVENT DATE: 20121001
